FAERS Safety Report 13226840 (Version 3)
Quarter: 2018Q3

REPORT INFORMATION
  Report Type: Spontaneous
  Country: FR (occurrence: FR)
  Receive Date: 20170213
  Receipt Date: 20180713
  Transmission Date: 20181010
  Serious: Yes (Other)
  Sender: FDA-Public Use
  Company Number: FR-SEATTLE GENETICS-2016SGN02116

PATIENT
  Age: 35 Year
  Sex: Male

DRUGS (2)
  1. ADCETRIS [Suspect]
     Active Substance: BRENTUXIMAB VEDOTIN
     Indication: HODGKIN^S DISEASE
     Dosage: 1.8 MG/KG, 3/WEEK
     Route: 042
     Dates: start: 201306
  2. BENDAMUSTINE HYDROCHLORIDE. [Suspect]
     Active Substance: BENDAMUSTINE HYDROCHLORIDE
     Indication: HODGKIN^S DISEASE
     Dosage: 90 MG/M2, UNK
     Route: 042
     Dates: start: 201306

REACTIONS (3)
  - Anaemia [Unknown]
  - Product use in unapproved indication [Unknown]
  - Drug resistance [Unknown]

NARRATIVE: CASE EVENT DATE: 201603
